FAERS Safety Report 19628323 (Version 2)
Quarter: 2021Q3

REPORT INFORMATION
  Report Type: Spontaneous
  Country: IN (occurrence: IN)
  Receive Date: 20210728
  Receipt Date: 20210804
  Transmission Date: 20211014
  Serious: Yes (Death)
  Sender: FDA-Public Use
  Company Number: IN-PFIZER INC-2020315515

PATIENT
  Age: 52 Year
  Sex: Female
  Weight: 49 kg

DRUGS (12)
  1. PALBACE [Suspect]
     Active Substance: PALBOCICLIB
     Indication: BREAST CANCER METASTATIC
     Dosage: 125 MG, 1X/DAY
     Route: 048
     Dates: start: 20190918
  2. DENOSUMAB [Concomitant]
     Active Substance: DENOSUMAB
     Dosage: 120 MG, SINGLE
     Route: 058
     Dates: start: 20210420
  3. PALBACE [Suspect]
     Active Substance: PALBOCICLIB
     Dosage: 75 MG, 1X/DAY(X3W)
     Route: 048
     Dates: start: 20210323
  4. EXEMESTANE. [Concomitant]
     Active Substance: EXEMESTANE
     Dosage: 25 MG, 1X/DAY(X4W)
     Route: 048
     Dates: start: 20210420
  5. PALBACE [Suspect]
     Active Substance: PALBOCICLIB
     Dosage: 75 MG, 1X/DAY(X3W)
     Route: 048
     Dates: start: 20210420
  6. PALBACE [Suspect]
     Active Substance: PALBOCICLIB
     Dosage: 75 MG, 1X/DAY
     Route: 048
  7. EXEMESTANE. [Concomitant]
     Active Substance: EXEMESTANE
     Dosage: 25 MG, 1X/DAY(X4W)
     Route: 048
     Dates: start: 20210323
  8. DENOSUMAB [Concomitant]
     Active Substance: DENOSUMAB
     Dosage: 120 MG, SINGLE
     Route: 058
     Dates: start: 20210323
  9. PALBACE [Suspect]
     Active Substance: PALBOCICLIB
     Dosage: 100 MG, CYCLIC (ONCE DAILY FOR 3 WEEKS)
     Route: 048
  10. DENOSUMAB [Concomitant]
     Active Substance: DENOSUMAB
     Dosage: 120 MG (D1 Q28D)
     Route: 058
  11. LETROZOLE. [Concomitant]
     Active Substance: LETROZOLE
     Dosage: 2.5 MG, CYCLIC, DAILY X 4 WEEKS
  12. EXEMESTANE. [Concomitant]
     Active Substance: EXEMESTANE
     Dosage: 25 MG, DAILY
     Route: 048

REACTIONS (2)
  - Asthenia [Unknown]
  - COVID-19 [Fatal]
